FAERS Safety Report 4341918-8 (Version None)
Quarter: 2004Q2

REPORT INFORMATION
  Report Type: 
  Country: None (occurrence: None)
  Receive Date: 20040415
  Receipt Date: 20040329
  Transmission Date: 20050107
  Serious: Yes (Hospitalization, Other)
  Sender: FDA-Public Use
  Company Number: USA030946664

PATIENT
  Age: 52 Year
  Sex: Male

DRUGS (1)
  1. ZYPREXA [Suspect]
     Dosage: FOR A FEW MONTHS
     Dates: end: 20030901

REACTIONS (7)
  - AMNESIA [None]
  - ASTHENIA [None]
  - ATELECTASIS [None]
  - CHEST PAIN [None]
  - PAIN IN EXTREMITY [None]
  - PLEURAL EFFUSION [None]
  - SYNCOPE [None]
